FAERS Safety Report 4784106-3 (Version None)
Quarter: 2005Q3

REPORT INFORMATION
  Report Type: 
  Country: None (occurrence: None)
  Receive Date: 20050930
  Receipt Date: 20050421
  Transmission Date: 20060218
  Serious: Yes (Other)
  Sender: FDA-Public Use
  Company Number: US-GLAXOSMITHKLINE-A0563718A

PATIENT
  Age: 10 Year
  Sex: Female
  Weight: 32.5 kg

DRUGS (5)
  1. FLOVENT [Suspect]
     Indication: DRUG USE FOR UNKNOWN INDICATION
     Dosage: 3PUFF PER DAY
     Route: 055
     Dates: start: 20050301, end: 20050401
  2. ADVAIR DISKUS 100/50 [Concomitant]
     Dosage: 1PUFF TWICE PER DAY
  3. SINGULAIR [Concomitant]
     Dosage: 5MG AT NIGHT
  4. ALLEGRA [Concomitant]
     Dosage: 30MG PER DAY
  5. ALBUTEROL [Concomitant]
     Dosage: 2PUFF VARIABLE DOSE

REACTIONS (3)
  - ASTHMA [None]
  - DRUG INEFFECTIVE [None]
  - PHARMACEUTICAL PRODUCT COMPLAINT [None]
